FAERS Safety Report 11400138 (Version 2)
Quarter: 2015Q4

REPORT INFORMATION
  Report Type: Report from Study
  Country: LB (occurrence: LB)
  Receive Date: 20150820
  Receipt Date: 20151209
  Transmission Date: 20160304
  Serious: Yes (Hospitalization, Other)
  Sender: FDA-Public Use
  Company Number: PHHY2015LB097525

PATIENT
  Sex: Male

DRUGS (1)
  1. GLIVEC [Suspect]
     Active Substance: IMATINIB MESYLATE
     Indication: CHRONIC MYELOID LEUKAEMIA
     Dosage: MATERNAL DOSE: 400 MG, QD
     Route: 064

REACTIONS (4)
  - Lung disorder [Recovered/Resolved]
  - Influenza [Recovering/Resolving]
  - Foetal exposure during pregnancy [Unknown]
  - Cough [Unknown]

NARRATIVE: CASE EVENT DATE: 20150722
